FAERS Safety Report 10555069 (Version 1)
Quarter: 2014Q4

REPORT INFORMATION
  Report Type: Report from Study
  Country: US (occurrence: US)
  Receive Date: 20141030
  Receipt Date: 20141030
  Transmission Date: 20150529
  Serious: Yes (Other)
  Sender: FDA-Public Use
  Company Number: US-BRISTOL-MYERS SQUIBB COMPANY-21528831

PATIENT
  Age: 62 Year
  Sex: Male
  Weight: 100.3 kg

DRUGS (1)
  1. IPILIMUMAB [Suspect]
     Active Substance: IPILIMUMAB
     Indication: MALIGNANT MELANOMA
     Dosage: INDUC THERA:OVER90MIN,Q3WKX4DOSES?MAINT THERA:Q12WEEKS ?TOTAL:1044MG,03DEC13: TOTAL 4 COURSE
     Route: 042
     Dates: start: 20131203

REACTIONS (1)
  - Hyperglycaemia [Recovering/Resolving]

NARRATIVE: CASE EVENT DATE: 20131214
